FAERS Safety Report 13330565 (Version 1)
Quarter: 2017Q1

REPORT INFORMATION
  Report Type: Spontaneous
  Country: US (occurrence: US)
  Receive Date: 20170314
  Receipt Date: 20170314
  Transmission Date: 20170428
  Serious: Yes (Other)
  Sender: FDA-Public Use
  Company Number: US-AMGEN-USASP2017035862

PATIENT
  Age: 57 Year
  Sex: Female

DRUGS (7)
  1. FLONASE [Concomitant]
     Active Substance: FLUTICASONE PROPIONATE
  2. PROLIA [Suspect]
     Active Substance: DENOSUMAB
     Indication: OSTEOPOROSIS POSTMENOPAUSAL
     Dosage: UNK
     Route: 065
     Dates: start: 201605
  3. NARDIL [Concomitant]
     Active Substance: PHENELZINE SULFATE
  4. XYREM [Concomitant]
     Active Substance: SODIUM OXYBATE
     Indication: NARCOLEPSY
  5. SINGULAIR [Concomitant]
     Active Substance: MONTELUKAST SODIUM
  6. PRAVASTATIN. [Concomitant]
     Active Substance: PRAVASTATIN
  7. VALIUM [Concomitant]
     Active Substance: DIAZEPAM

REACTIONS (3)
  - Tooth abscess [Unknown]
  - Inappropriate schedule of drug administration [Unknown]
  - Tooth disorder [Unknown]
